FAERS Safety Report 4687623-X (Version None)
Quarter: 2005Q2

REPORT INFORMATION
  Report Type: 
  Country: None (occurrence: None)
  Receive Date: 20050311
  Receipt Date: 20050311
  Transmission Date: 20051028
  Serious: Yes (Other)
  Sender: FDA-Public Use
  Company Number: None

PATIENT
  Sex: Female

DRUGS (5)
  1. GENERIC PAXIL [Suspect]
     Indication: IMPULSE-CONTROL DISORDER
     Dosage: 30 MG QD  CHANGED BY MEDICATION
  2. GENERIC PAXIL [Suspect]
     Indication: PRADER-WILLI SYNDROME
     Dosage: 30 MG QD  CHANGED BY MEDICATION
  3. ADDERALL [Concomitant]
  4. CARBATROL [Concomitant]
  5. GEODON [Concomitant]

REACTIONS (2)
  - ABNORMAL BEHAVIOUR [None]
  - THERAPEUTIC RESPONSE UNEXPECTED WITH DRUG SUBSTITUTION [None]
